FAERS Safety Report 7403077-4 (Version None)
Quarter: 2011Q1

REPORT INFORMATION
  Report Type: 
  Country: None (occurrence: None)
  Receive Date: 20110331
  Receipt Date: 20110315
  Transmission Date: 20110831
  Serious: Yes (Other)
  Sender: FDA-Public Use
  Company Number: 2011P1004412

PATIENT
  Age: 75 Year
  Sex: Male

DRUGS (5)
  1. LISINOPRIL [Concomitant]
  2. VENTOLIN [Concomitant]
  3. WARFARIN SODIUM [Suspect]
     Indication: MITRAL VALVE REPLACEMENT
     Dosage: 5 MG; 3 DAYS A WEEK;PO, 2.5 MG; 4 DAYS A WEEK; PO
     Route: 048
     Dates: start: 19900101
  4. WARFARIN SODIUM [Suspect]
     Indication: MITRAL VALVE REPLACEMENT
     Dosage: 5 MG; 3 DAYS A WEEK;PO, 2.5 MG; 4 DAYS A WEEK; PO
     Route: 048
     Dates: start: 19900101
  5. ASMANEX TWISTHALER [Concomitant]

REACTIONS (5)
  - INTERNATIONAL NORMALISED RATIO INCREASED [None]
  - PRODUCT SUBSTITUTION ISSUE [None]
  - HAEMATURIA [None]
  - RECTAL HAEMORRHAGE [None]
  - HAEMATOCRIT DECREASED [None]
